FAERS Safety Report 8352809-X (Version None)
Quarter: 2012Q2

REPORT INFORMATION
  Report Type: 
  Country: None (occurrence: None)
  Receive Date: 20120509
  Receipt Date: 20120427
  Transmission Date: 20120825
  Serious: Yes (Hospitalization)
  Sender: FDA-Public Use
  Company Number: WAES 1203USA00795

PATIENT
  Age: 76 Year
  Sex: Male

DRUGS (15)
  1. ACTOS [Concomitant]
  2. AMLODIPINE BESYLATE [Concomitant]
  3. MIGLITOL [Concomitant]
  4. ALLOPURINOL [Concomitant]
  5. JANUVIA [Suspect]
     Indication: TYPE 2 DIABETES MELLITUS
     Dosage: 25 MG/DAILY, PO
     Route: 048
     Dates: start: 20110125, end: 20120103
  6. ENALAPRIL MALEATE [Concomitant]
  7. ARGAMATE JELLY [Concomitant]
  8. SODIUM BICARBONATE [Concomitant]
  9. BUFFERIN [Concomitant]
  10. LOXONIN [Concomitant]
  11. BISOPROLOL FUMARATE [Concomitant]
  12. WARFARIN SODIUM [Concomitant]
  13. AMARYL [Concomitant]
  14. CRESTOR [Concomitant]
  15. LOSARTAN POTASSIUM AND HYDROCHLOROTHIAZIDE [Concomitant]

REACTIONS (2)
  - RENAL FAILURE [None]
  - CARDIAC FAILURE [None]
